FAERS Safety Report 7123522-1 (Version None)
Quarter: 2010Q4

REPORT INFORMATION
  Report Type: 
  Country: None (occurrence: None)
  Receive Date: 20101125
  Receipt Date: 20101119
  Transmission Date: 20110411
  Serious: Yes (Other)
  Sender: FDA-Public Use
  Company Number: JP-PFIZER INC-2010155865

PATIENT
  Age: 48 Year
  Sex: Male

DRUGS (1)
  1. CELECOXIB [Suspect]
     Dosage: 100 MG, 2X/DAY
     Route: 048
     Dates: start: 20100910

REACTIONS (1)
  - BLOOD CREATINE PHOSPHOKINASE INCREASED [None]
